FAERS Safety Report 22013757 (Version 3)
Quarter: 2023Q1

REPORT INFORMATION
  Report Type: Spontaneous
  Country: US (occurrence: US)
  Receive Date: 20230221
  Receipt Date: 20230319
  Transmission Date: 20230418
  Serious: No
  Sender: FDA-Public Use
  Company Number: US-JNJFOC-20230223968

PATIENT
  Age: 84 Year
  Sex: Male

DRUGS (2)
  1. XARELTO [Interacting]
     Active Substance: RIVAROXABAN
     Indication: Product used for unknown indication
     Route: 048
  2. OFEV [Interacting]
     Active Substance: NINTEDANIB
     Indication: Pulmonary fibrosis
     Route: 048

REACTIONS (7)
  - Diarrhoea [Not Recovered/Not Resolved]
  - Hypotension [Unknown]
  - Drug interaction [Not Recovered/Not Resolved]
  - Cough [Unknown]
  - Memory impairment [Unknown]
  - Fatigue [Unknown]
  - Illness [Unknown]

NARRATIVE: CASE EVENT DATE: 20221003
